FAERS Safety Report 12659392 (Version 1)
Quarter: 2016Q3

REPORT INFORMATION
  Report Type: Report from Study
  Country: DE (occurrence: DE)
  Receive Date: 20160817
  Receipt Date: 20160817
  Transmission Date: 20161109
  Serious: Yes (Other)
  Sender: FDA-Public Use
  Company Number: DE-ROCHE-1606093

PATIENT
  Age: 71 Year
  Sex: Male

DRUGS (2)
  1. VEMURAFENIB [Suspect]
     Active Substance: VEMURAFENIB
     Indication: MALIGNANT MELANOMA
     Route: 065
  2. COBIMETINIB [Suspect]
     Active Substance: COBIMETINIB
     Indication: MALIGNANT MELANOMA
     Route: 065
     Dates: start: 20150527, end: 20151008

REACTIONS (4)
  - Nausea [Unknown]
  - Visual impairment [Recovering/Resolving]
  - Abdominal discomfort [Unknown]
  - Retinopathy [Recovering/Resolving]

NARRATIVE: CASE EVENT DATE: 20150617
